FAERS Safety Report 24399323 (Version 2)
Quarter: 2024Q4

REPORT INFORMATION
  Report Type: Spontaneous
  Country: BR (occurrence: BR)
  Receive Date: 20241004
  Receipt Date: 20241011
  Transmission Date: 20250114
  Serious: Yes (Other)
  Sender: MERCK
  Company Number: None

PATIENT
  Sex: Female

DRUGS (1)
  1. PEMBROLIZUMAB [Suspect]
     Active Substance: PEMBROLIZUMAB
     Dosage: MAYBE 6 CYCLES

REACTIONS (3)
  - Recurrent cancer [Recovering/Resolving]
  - Bone marrow transplant [Unknown]
  - Tumour pseudoprogression [Unknown]
